FAERS Safety Report 6119798-X (Version None)
Quarter: 2009Q1

REPORT INFORMATION
  Report Type: 
  Country: None (occurrence: None)
  Receive Date: 20090316
  Receipt Date: 20090304
  Transmission Date: 20090719
  Serious: Yes (Death, Other)
  Sender: FDA-Public Use
  Company Number: JP-PFIZER INC-2009180905

PATIENT

DRUGS (4)
  1. TOPOTECIN [Suspect]
     Indication: SMALL CELL LUNG CANCER STAGE UNSPECIFIED
     Dosage: (90 MG)
     Route: 041
     Dates: start: 20090114, end: 20090121
  2. PARAPLATIN [Concomitant]
     Route: 041
  3. KYTRIL [Concomitant]
  4. DECADRON [Concomitant]

REACTIONS (3)
  - DIARRHOEA [None]
  - MULTI-ORGAN FAILURE [None]
  - NEUTROPENIA [None]
